FAERS Safety Report 25300612 (Version 1)
Quarter: 2025Q2

REPORT INFORMATION
  Report Type: Spontaneous
  Country: FR (occurrence: FR)
  Receive Date: 20250512
  Receipt Date: 20250512
  Transmission Date: 20250717
  Serious: Yes (Death, Congenital Anomaly, Other)
  Sender: PFIZER
  Company Number: None

PATIENT

DRUGS (10)
  1. ASPIRIN [Suspect]
     Active Substance: ASPIRIN
     Route: 064
     Dates: start: 2024, end: 20241108
  2. ESTRADIOL [Suspect]
     Active Substance: ESTRADIOL
     Dosage: 4 MG, 1X/DAY
     Route: 064
     Dates: start: 2024, end: 202411
  3. FILGRASTIM [Suspect]
     Active Substance: FILGRASTIM
     Route: 064
     Dates: start: 202408, end: 202410
  4. METFORMIN [Suspect]
     Active Substance: METFORMIN HYDROCHLORIDE
     Dosage: 500 MG, 1X/DAY
     Route: 064
     Dates: start: 20240825, end: 202411
  5. HYDROXYCHLOROQUINE SULFATE [Suspect]
     Active Substance: HYDROXYCHLOROQUINE SULFATE
     Dosage: 200 MG, 1X/DAY
     Route: 064
     Dates: start: 202408, end: 20241108
  6. PREDNISONE [Suspect]
     Active Substance: PREDNISONE
     Dosage: 10 MG, 1X/DAY
     Route: 064
     Dates: start: 202408, end: 20241108
  7. LOVENOX [Suspect]
     Active Substance: ENOXAPARIN SODIUM
     Dosage: 0.6 ML, 1X/DAY
     Route: 064
     Dates: start: 202408, end: 20241108
  8. VITAMIN E [Suspect]
     Active Substance: .ALPHA.-TOCOPHEROL
     Dosage: 1 G, 1X/DAY
     Route: 064
     Dates: start: 202408, end: 20241108
  9. PROGESTERONE [Suspect]
     Active Substance: PROGESTERONE
     Dosage: 400 MG, 1X/DAY
     Route: 064
     Dates: start: 2024, end: 202411
  10. CHOLECALCIFEROL [Suspect]
     Active Substance: CHOLECALCIFEROL
     Route: 064
     Dates: start: 20240825, end: 20241108

REACTIONS (2)
  - Maternal exposure during pregnancy [Fatal]
  - Multiple congenital abnormalities [Fatal]

NARRATIVE: CASE EVENT DATE: 20240801
